FAERS Safety Report 21774102 (Version 2)
Quarter: 2023Q1

REPORT INFORMATION
  Report Type: Other
  Country: GB (occurrence: GB)
  Receive Date: 20221223
  Receipt Date: 20230125
  Transmission Date: 20230418
  Serious: Yes (Death, Life-Threatening, Hospitalization, Other)
  Sender: FDA-Public Use
  Company Number: GB-CELLTRION INC.-2022GB020918

PATIENT

DRUGS (2)
  1. INFLIXIMAB [Suspect]
     Active Substance: INFLIXIMAB
     Indication: Crohn^s disease
     Dosage: 5MG/KG EVERY 8 WEEKS (CUMULATIVE DOSE TO FIRST REACTION: 220.26785 MG/KG)
     Route: 042
     Dates: start: 20150830
  2. AZATHIOPRINE [Concomitant]
     Active Substance: AZATHIOPRINE
     Indication: Crohn^s disease
     Dosage: UNK
     Dates: start: 20160101

REACTIONS (7)
  - Malignant neoplasm of unknown primary site [Fatal]
  - Metastases to liver [Fatal]
  - Metastases to lung [Fatal]
  - Cardiac arrest [Fatal]
  - Abdominal pain [Fatal]
  - Abdominal distension [Fatal]
  - Peripheral swelling [Fatal]

NARRATIVE: CASE EVENT DATE: 20220601
